FAERS Safety Report 5688211-9 (Version None)
Quarter: 2008Q1

REPORT INFORMATION
  Report Type: 
  Country: None (occurrence: None)
  Receive Date: 20080327
  Receipt Date: 20080319
  Transmission Date: 20080703
  Serious: Yes (Hospitalization, Other)
  Sender: FDA-Public Use
  Company Number: 2008SP005738

PATIENT
  Age: 66 Year
  Sex: Female

DRUGS (12)
  1. TEMODAL [Suspect]
     Indication: GLIOBLASTOMA
     Dosage: 100 MG; QD; PO;  200 MG/M2; PO
     Route: 048
     Dates: start: 20050215, end: 20050301
  2. TEMODAL [Suspect]
     Indication: GLIOBLASTOMA
     Dosage: 100 MG; QD; PO;  200 MG/M2; PO
     Route: 048
     Dates: start: 20050516, end: 20050801
  3. ANDAPSIN [Concomitant]
  4. INOLAXOL [Concomitant]
  5. FRAGMIN [Concomitant]
  6. SIMVASTATIN [Concomitant]
  7. COZAAR [Concomitant]
  8. SOTALOL HCL [Concomitant]
  9. ALVEDON FORTE [Concomitant]
  10. FENANTOIN [Concomitant]
  11. FLUSCAND [Concomitant]
  12. BETAPRED [Concomitant]

REACTIONS (6)
  - DISEASE RECURRENCE [None]
  - HAEMOGLOBIN DECREASED [None]
  - LEUKOPENIA [None]
  - PNEUMONIA [None]
  - THROMBOCYTOPENIA [None]
  - URINARY TRACT INFECTION [None]
